FAERS Safety Report 8602591-3 (Version None)
Quarter: 2012Q3

REPORT INFORMATION
  Report Type: 
  Country: None (occurrence: None)
  Receive Date: 20120817
  Receipt Date: 19960528
  Transmission Date: 20120928
  Serious: Yes (Hospitalization, Other)
  Sender: FDA-Public Use
  Company Number: US-ROCHE-1101626

PATIENT
  Sex: Male

DRUGS (7)
  1. ACTIVASE [Suspect]
     Indication: MYOCARDIAL INFARCTION
  2. ASPIRIN [Concomitant]
  3. HEPARIN [Concomitant]
     Dosage: 2500 UNITS IN 500 D5W
  4. KEFZOL [Concomitant]
     Route: 042
  5. PHENERGAN HCL [Concomitant]
  6. GI COCKTAIL NOS [Concomitant]
  7. HEPARIN [Concomitant]
     Dosage: 5000 UNITS
     Route: 040

REACTIONS (4)
  - VENTRICULAR EXTRASYSTOLES [None]
  - CHEST PAIN [None]
  - NODAL RHYTHM [None]
  - BUNDLE BRANCH BLOCK [None]
